FAERS Safety Report 9570669 (Version 1)
Quarter: 2013Q4

REPORT INFORMATION
  Report Type: Spontaneous
  Country: US (occurrence: US)
  Receive Date: 20131001
  Receipt Date: 20131001
  Transmission Date: 20140711
  Serious: No
  Sender: FDA-Public Use
  Company Number: US-BIOGENIDEC-2013BI092394

PATIENT
  Age: 42 Year
  Sex: Female

DRUGS (3)
  1. TYSABRI [Suspect]
     Indication: MULTIPLE SCLEROSIS
     Route: 042
     Dates: start: 20080801, end: 20100512
  2. TYSABRI [Suspect]
     Indication: MULTIPLE SCLEROSIS
     Route: 042
     Dates: start: 20100907, end: 20130627
  3. REBIF [Concomitant]
     Indication: MULTIPLE SCLEROSIS

REACTIONS (2)
  - Hypoaesthesia [Not Recovered/Not Resolved]
  - Memory impairment [Recovered/Resolved]
